FAERS Safety Report 8215350-0 (Version None)
Quarter: 2012Q1

REPORT INFORMATION
  Report Type: 
  Country: None (occurrence: None)
  Receive Date: 20120316
  Receipt Date: 20120312
  Transmission Date: 20120608
  Serious: Yes (Other)
  Sender: FDA-Public Use
  Company Number: US-PFIZER INC-2012030695

PATIENT
  Sex: Male
  Weight: 107.48 kg

DRUGS (11)
  1. CHANTIX [Suspect]
     Indication: SMOKING CESSATION THERAPY
     Dosage: 0.5MG DAILY
  2. GABAPENTIN [Concomitant]
     Dosage: 300 MG, UNK
  3. FELODIPINE [Concomitant]
     Dosage: 10 MG, UNK
  4. OMEPRAZOLE [Concomitant]
     Dosage: 40 MG, UNK
  5. DOXAZOSIN [Concomitant]
     Dosage: 4 MG, UNK
  6. ACETAMINOPHEN AND OXYCODONE HCL [Concomitant]
     Dosage: 10/650 MG
  7. MELOXICAM [Concomitant]
     Dosage: 15 MG, UNK
  8. CHANTIX [Suspect]
     Dosage: 1 MG, UNK
     Dates: end: 20110101
  9. TRAZODONE [Concomitant]
     Dosage: 150 MG, UNK
  10. LIPITOR [Concomitant]
     Dosage: 10 MG, UNK
  11. MORPHINE [Concomitant]
     Dosage: 15 MG, UNK

REACTIONS (5)
  - HYPERSENSITIVITY [None]
  - ASTHENIA [None]
  - DIZZINESS [None]
  - HEADACHE [None]
  - WEIGHT DECREASED [None]
